FAERS Safety Report 24289813 (Version 1)
Quarter: 2024Q3

REPORT INFORMATION
  Report Type: Spontaneous
  Country: IN (occurrence: IN)
  Receive Date: 20240906
  Receipt Date: 20240906
  Transmission Date: 20241016
  Serious: Yes (Hospitalization, Other)
  Sender: JUBILANT
  Company Number: None

PATIENT
  Age: 50 Year
  Sex: Male

DRUGS (1)
  1. LAMOTRIGINE [Suspect]
     Active Substance: LAMOTRIGINE
     Indication: Epilepsy
     Dosage: UNK,  UNK
     Route: 065

REACTIONS (7)
  - Drug reaction with eosinophilia and systemic symptoms [Recovered/Resolved]
  - Shock [Recovering/Resolving]
  - Adrenocortical insufficiency acute [Unknown]
  - Acute myocardial infarction [Recovering/Resolving]
  - Acute coronary syndrome [Recovering/Resolving]
  - Metabolic acidosis [Recovering/Resolving]
  - Cholestatic liver injury [Recovering/Resolving]
